FAERS Safety Report 4452289-0 (Version None)
Quarter: 2004Q3

REPORT INFORMATION
  Report Type: 
  Country: None (occurrence: None)
  Receive Date: 20040917
  Receipt Date: 20040524
  Transmission Date: 20050211
  Serious: Yes (Other)
  Sender: FDA-Public Use
  Company Number: JP-ROCHE-368686

PATIENT
  Age: 4 Year
  Sex: Male
  Weight: 15 kg

DRUGS (6)
  1. ROCEPHIN [Suspect]
     Indication: MENINGITIS
     Dosage: ROUTE REPORTED AS DRIP
     Route: 050
     Dates: start: 20040506, end: 20040517
  2. CARBENIN [Concomitant]
     Indication: MENINGITIS
     Route: 042
     Dates: start: 20040505, end: 20040517
  3. ZOVIRAX [Concomitant]
     Route: 042
     Dates: start: 20040505, end: 20040517
  4. GLYCEOL [Concomitant]
     Route: 042
     Dates: start: 20040505, end: 20040508
  5. DECADRON [Concomitant]
     Route: 042
     Dates: start: 20040508, end: 20040509
  6. GASTER [Concomitant]
     Route: 042
     Dates: start: 20040510, end: 20040518

REACTIONS (5)
  - ABDOMINAL TENDERNESS [None]
  - CHOLELITHIASIS [None]
  - EPENDYMOMA [None]
  - HYDROCEPHALUS [None]
  - HYDRONEPHROSIS [None]
